FAERS Safety Report 7622563-5 (Version None)
Quarter: 2011Q3

REPORT INFORMATION
  Report Type: 
  Country: None (occurrence: None)
  Receive Date: 20110712
  Receipt Date: 20110627
  Transmission Date: 20111222
  Serious: Yes (Other)
  Sender: FDA-Public Use
  Company Number: LTI2011A00182

PATIENT
  Age: 59 Year
  Sex: Male

DRUGS (3)
  1. PIOGLITAZONE HYDROCHLORIDE/METFORMIN HYDROCHLORIDE [Suspect]
     Indication: TYPE 2 DIABETES MELLITUS
     Dosage: 2 TAB. (1 TAB., 2 IN 1 D) ORAL
     Route: 048
     Dates: start: 20110101, end: 20110601
  2. ACTOS [Suspect]
     Indication: TYPE 2 DIABETES MELLITUS
     Dosage: (15 MG, 1 D) ORAL; (30 MG, 1 D) ORAL
     Route: 048
     Dates: start: 20081001, end: 20110101
  3. ACTOS [Suspect]
     Indication: TYPE 2 DIABETES MELLITUS
     Dosage: (15 MG, 1 D) ORAL; (30 MG, 1 D) ORAL
     Route: 048
     Dates: start: 20070301, end: 20081001

REACTIONS (1)
  - BLADDER TRANSITIONAL CELL CARCINOMA [None]
